FAERS Safety Report 11294010 (Version 2)
Quarter: 2015Q3

REPORT INFORMATION
  Report Type: Report from Study
  Country: US (occurrence: US)
  Receive Date: 20150722
  Receipt Date: 20150731
  Transmission Date: 20151125
  Serious: No
  Sender: FDA-Public Use
  Company Number: US-AMGEN-USASL2015052465

PATIENT
  Sex: Male
  Weight: 76.64 kg

DRUGS (1)
  1. KYPROLIS [Suspect]
     Active Substance: CARFILZOMIB
     Indication: PLASMA CELL MYELOMA RECURRENT
     Dosage: UNK
     Route: 065
     Dates: start: 201502

REACTIONS (1)
  - Unevaluable event [Unknown]
